FAERS Safety Report 7100081-0 (Version None)
Quarter: 2010Q4

REPORT INFORMATION
  Report Type: 
  Country: None (occurrence: None)
  Receive Date: 20101112
  Receipt Date: 20091023
  Transmission Date: 20110411
  Serious: No
  Sender: FDA-Public Use
  Company Number: A0813170A

PATIENT
  Age: 76 Year
  Sex: Female

DRUGS (5)
  1. COREG [Suspect]
     Indication: HYPERTENSION
     Route: 048
     Dates: start: 20080101, end: 20080101
  2. ACTONEL [Concomitant]
  3. LOVASTATIN [Concomitant]
  4. RAMIPRIL [Concomitant]
  5. WARFARIN [Concomitant]

REACTIONS (2)
  - DIZZINESS [None]
  - NAUSEA [None]
